FAERS Safety Report 8166063-5 (Version None)
Quarter: 2012Q1

REPORT INFORMATION
  Report Type: 
  Country: None (occurrence: None)
  Receive Date: 20120227
  Receipt Date: 20110321
  Transmission Date: 20120608
  Serious: No
  Sender: FDA-Public Use
  Company Number: US-MYLANLABS-2011S1004383

PATIENT
  Age: 23 Year
  Sex: Female

DRUGS (3)
  1. AMNESTEEM [Suspect]
     Indication: ACNE
     Route: 048
     Dates: end: 20110209
  2. CLARAVIS [Suspect]
     Indication: ACNE
     Route: 048
  3. ORTHO TRI-CYCLEN LO [Concomitant]

REACTIONS (1)
  - HEADACHE [None]
